FAERS Safety Report 23270803 (Version 1)
Quarter: 2023Q4

REPORT INFORMATION
  Report Type: Spontaneous
  Country: CA (occurrence: CA)
  Receive Date: 20231207
  Receipt Date: 20231207
  Transmission Date: 20240109
  Serious: Yes (Other)
  Sender: FDA-Public Use
  Company Number: CA-VIIV HEALTHCARE LIMITED-CA2023097036

PATIENT
  Age: 67 Year
  Sex: Male

DRUGS (6)
  1. RILPIVIRINE [Suspect]
     Active Substance: RILPIVIRINE
     Indication: HIV infection
     Dosage: UNK UNK, MO1ST + 2ND INJ 3ML(600/900MG) -1 MONTH APART, CONTINUATION INJ^S 2 MONTHS APART
     Route: 030
     Dates: start: 20230615
  2. RILPIVIRINE [Suspect]
     Active Substance: RILPIVIRINE
     Dosage: UNK UNK, MO1ST + 2ND INJ 3ML(600/900MG) -1 MONTH APART, CONTINUATION INJ^S 2 MONTHS APART
     Route: 030
     Dates: start: 20230719
  3. RILPIVIRINE [Suspect]
     Active Substance: RILPIVIRINE
     Dosage: UNK UNK, Q2M,(600MG/3ML) CABOTEGRAVIR INJECTION AND (900MG/3ML) RILPIVIRINE INJECTION
     Route: 030
     Dates: start: 2023
  4. CABOTEGRAVIR [Suspect]
     Active Substance: CABOTEGRAVIR
     Indication: HIV infection
     Dosage: UNK UNK, MO1ST + 2ND INJ 3ML(600/900MG) -1 MONTH APART, CONTINUATION INJ^S 2 MONTHS APART
     Route: 030
     Dates: start: 20230615
  5. CABOTEGRAVIR [Suspect]
     Active Substance: CABOTEGRAVIR
     Dosage: UNK UNK, MO1ST + 2ND INJ 3ML(600/900MG) -1 MONTH APART, CONTINUATION INJ^S 2 MONTHS APART
     Route: 030
     Dates: start: 20230719
  6. CABOTEGRAVIR [Suspect]
     Active Substance: CABOTEGRAVIR
     Dosage: UNK UNK, Q2M,(600MG/3ML) CABOTEGRAVIR INJECTION AND (900MG/3ML) RILPIVIRINE INJECTION
     Route: 030
     Dates: start: 2023

REACTIONS (13)
  - Spinal cord injury [Unknown]
  - Physical assault [Unknown]
  - Injection site mass [Not Recovered/Not Resolved]
  - Injection site swelling [Unknown]
  - Injection site discomfort [Unknown]
  - Injection site pain [Unknown]
  - Mouth injury [Recovering/Resolving]
  - Head injury [Recovering/Resolving]
  - Musculoskeletal pain [Not Recovered/Not Resolved]
  - Movement disorder [Unknown]
  - Dizziness [Recovering/Resolving]
  - Peripheral swelling [Not Recovered/Not Resolved]
  - Fall [Unknown]

NARRATIVE: CASE EVENT DATE: 20230101
